FAERS Safety Report 25731303 (Version 1)
Quarter: 2025Q3

REPORT INFORMATION
  Report Type: Spontaneous
  Country: US (occurrence: None)
  Receive Date: 20250826
  Receipt Date: 20250826
  Transmission Date: 20251021
  Serious: Yes (Other)
  Sender: FDA-CTU
  Company Number: None

PATIENT
  Age: 42 Year
  Sex: Male
  Weight: 111.9 kg

DRUGS (6)
  1. LITHIUM [Suspect]
     Active Substance: LITHIUM
     Indication: Schizoaffective disorder
     Dosage: FREQUENCY : AT BEDTIME;?
     Route: 048
     Dates: start: 20250211
  2. lithium 900 mg QHS [Concomitant]
     Dates: start: 20250220
  3. escitalopram 20 mg QHS [Concomitant]
     Dates: start: 20241024, end: 20250311
  4. Hydroxyzine 25 mg QHS PRN [Concomitant]
  5. Cariprazine 3 mg QD [Concomitant]
  6. escitalopram 10 mg QHS [Concomitant]
     Dates: start: 20250312

REACTIONS (2)
  - Sinus bradycardia [None]
  - Electrocardiogram QT prolonged [None]

NARRATIVE: CASE EVENT DATE: 20250604
